FAERS Safety Report 10236046 (Version 1)
Quarter: 2014Q2

REPORT INFORMATION
  Report Type: Spontaneous
  Country: GB (occurrence: GB)
  Receive Date: 20140613
  Receipt Date: 20140613
  Transmission Date: 20141212
  Serious: Yes (Hospitalization, Disabling)
  Sender: FDA-Public Use
  Company Number: PHHY2014GB069563

PATIENT
  Age: 72 Year
  Sex: Female

DRUGS (7)
  1. SIMVASTATIN [Suspect]
     Indication: ACUTE MYOCARDIAL INFARCTION
     Dosage: 40 MG, UNK
     Route: 048
     Dates: start: 2013, end: 20140430
  2. SIMVASTATIN [Suspect]
     Dosage: 80 MG, UNK
     Route: 048
     Dates: start: 20140501, end: 20140513
  3. ASPIRIN [Concomitant]
  4. BISOPROLOL FUMARATE [Concomitant]
  5. METFORMIN [Concomitant]
  6. PRASUGREL [Concomitant]
  7. RAMIPRIL [Concomitant]

REACTIONS (6)
  - Mobility decreased [Recovered/Resolved]
  - Drug prescribing error [Unknown]
  - Renal failure acute [Recovered/Resolved]
  - Myopathy [Recovered/Resolved]
  - Myalgia [Recovered/Resolved]
  - Liver function test abnormal [Recovered/Resolved]
